FAERS Safety Report 6593792-7 (Version None)
Quarter: 2010Q1

REPORT INFORMATION
  Report Type: 
  Country: None (occurrence: None)
  Receive Date: 20100212
  Receipt Date: 20100128
  Transmission Date: 20100710
  Serious: Yes (Other)
  Sender: FDA-Public Use
  Company Number: 2010SP004375

PATIENT
  Age: 67 Year
  Sex: Female

DRUGS (9)
  1. MIRTAZAPINE [Suspect]
     Indication: DEPRESSION
     Dosage: 15 MG; QD; PO
     Route: 048
     Dates: start: 20091125
  2. PAROXETINE HYDROCHLORIDE HYDRATE (CON.) [Concomitant]
  3. SULPIRIDE (CON.) [Concomitant]
  4. BROTOZOLAM (CON.) [Concomitant]
  5. CLOTIAZEPAM (CON.) [Concomitant]
  6. LORAZEPAM (CON.) [Concomitant]
  7. CLOMIPRAMINE HYDROCHLORIDE (CON.) [Concomitant]
  8. FLUVOXAMINE MALEATE (CON.) [Concomitant]
  9. DOSULEPIN HYDROCHLORIDE (CON.) [Concomitant]

REACTIONS (2)
  - DRY EYE [None]
  - ULCERATIVE KERATITIS [None]
